FAERS Safety Report 18344000 (Version 1)
Quarter: 2020Q4

REPORT INFORMATION
  Report Type: Spontaneous
  Country: US (occurrence: US)
  Receive Date: 20201005
  Receipt Date: 20201005
  Transmission Date: 20210114
  Serious: Yes (Hospitalization)
  Sender: FDA-Public Use
  Company Number: US-JNJFOC-20201005355

PATIENT
  Age: 48 Year
  Sex: Male

DRUGS (6)
  1. SILDENAFIL. [Concomitant]
     Active Substance: SILDENAFIL
  2. TYLENOL [Suspect]
     Active Substance: ACETAMINOPHEN
     Indication: ABDOMINAL PAIN
     Route: 065
     Dates: start: 2020
  3. AMBRISENTAN [Concomitant]
     Active Substance: AMBRISENTAN
  4. NACL [Concomitant]
     Active Substance: SODIUM CHLORIDE
     Indication: PRODUCT USED FOR UNKNOWN INDICATION
     Dosage: 50 CC/HR
     Route: 065
  5. UPTRAVI [Concomitant]
     Active Substance: SELEXIPAG
     Dates: start: 202003
  6. TRIUMEQ [Concomitant]
     Active Substance: ABACAVIR SULFATE\DOLUTEGRAVIR SODIUM\LAMIVUDINE
     Indication: HIV INFECTION
     Route: 065

REACTIONS (5)
  - International normalised ratio increased [Unknown]
  - Ascites [Unknown]
  - Toxicity to various agents [Recovered/Resolved]
  - Transaminases increased [Recovered/Resolved]
  - Blood lactate dehydrogenase increased [Unknown]

NARRATIVE: CASE EVENT DATE: 20200529
